FAERS Safety Report 20866751 (Version 7)
Quarter: 2022Q3

REPORT INFORMATION
  Report Type: Spontaneous
  Country: CZ (occurrence: CZ)
  Receive Date: 20220524
  Receipt Date: 20220922
  Transmission Date: 20221026
  Serious: Yes (Hospitalization)
  Sender: FDA-Public Use
  Company Number: CZ-SA-SAC20220427000712

PATIENT
  Age: 82 Year
  Sex: Male
  Weight: 79 kg

DRUGS (28)
  1. RITUXIMAB [Suspect]
     Active Substance: RITUXIMAB
     Indication: Diffuse large B-cell lymphoma
     Dosage: 375 MG/M2, Q3W
     Route: 042
     Dates: start: 20220331, end: 20220331
  2. DOXORUBICIN [Suspect]
     Active Substance: DOXORUBICIN
     Indication: Diffuse large B-cell lymphoma
     Dosage: 25 MG/M2, Q3W
     Route: 042
     Dates: start: 20220331, end: 20220331
  3. PREDNISONE [Suspect]
     Active Substance: PREDNISONE
     Indication: Cytokine release syndrome
     Dosage: 100 MG QD
     Route: 048
     Dates: start: 20220407, end: 20220410
  4. PREDNISONE [Suspect]
     Active Substance: PREDNISONE
     Indication: Diffuse large B-cell lymphoma
     Route: 048
     Dates: start: 20220331, end: 20220414
  5. PREDNISONE [Suspect]
     Active Substance: PREDNISONE
     Route: 048
     Dates: start: 20220414, end: 20220417
  6. CYCLOPHOSPHAMIDE [Suspect]
     Active Substance: CYCLOPHOSPHAMIDE
     Indication: Diffuse large B-cell lymphoma
     Dosage: 400 MG/M2, Q3W
     Route: 042
     Dates: start: 20220331, end: 20220331
  7. EPCORITAMAB [Suspect]
     Active Substance: EPCORITAMAB
     Indication: Diffuse large B-cell lymphoma
     Dosage: 0.8 MG, 1X TOTAL
     Route: 058
     Dates: start: 20220407, end: 20220407
  8. EPCORITAMAB [Suspect]
     Active Substance: EPCORITAMAB
     Dosage: 0.16 MG, 1X, TOTAL
     Route: 058
     Dates: start: 20220331, end: 20220331
  9. EPCORITAMAB [Suspect]
     Active Substance: EPCORITAMAB
     Dosage: 48 MG, 1X, TOTAL
     Route: 058
     Dates: start: 20220414, end: 20220414
  10. EPCORITAMAB [Suspect]
     Active Substance: EPCORITAMAB
     Route: 058
     Dates: start: 20220414, end: 20220428
  11. VINCRISTINE SULFATE [Suspect]
     Active Substance: VINCRISTINE SULFATE
     Indication: Diffuse large B-cell lymphoma
     Dosage: 1 MG/M2, Q3W
     Route: 042
     Dates: start: 20220331, end: 20220331
  12. CALCIUM CARBONATE [Concomitant]
     Active Substance: CALCIUM CARBONATE
     Dosage: UNK
     Dates: start: 20220331
  13. CEFUROXIME SODIUM [Concomitant]
     Active Substance: CEFUROXIME SODIUM
     Dosage: UNK
     Dates: start: 20220408, end: 20220412
  14. ATORVASTATIN [Concomitant]
     Active Substance: ATORVASTATIN
     Dosage: UNK
     Dates: start: 2000
  15. FILGRASTIM [Concomitant]
     Active Substance: FILGRASTIM
     Dosage: UNK
     Dates: start: 20220410, end: 20220411
  16. ASPIRIN [Concomitant]
     Active Substance: ASPIRIN
     Dosage: 2000 UNK
     Dates: start: 2000
  17. PANTOPRAZOLE SODIUM [Concomitant]
     Active Substance: PANTOPRAZOLE SODIUM
     Dosage: UNK
     Dates: start: 20220331
  18. BISEPTOL [Concomitant]
     Active Substance: SULFAMETHOXAZOLE\TRIMETHOPRIM
     Dosage: UNK
     Dates: start: 20220331
  19. TAMSULOSIN [Concomitant]
     Active Substance: TAMSULOSIN
     Dosage: UNK
     Dates: start: 2000
  20. GRANISETRON HYDROCHLORIDE [Concomitant]
     Active Substance: GRANISETRON HYDROCHLORIDE
     Dosage: UNK
     Dates: start: 20220401, end: 20220402
  21. SORBIFER DURULES [ASCORBIC ACID;FERROUS SULFATE] [Concomitant]
     Dosage: UNK
     Dates: start: 2000
  22. SANGONA [Concomitant]
     Dosage: UNK
     Dates: start: 2000
  23. PARALEN [PARACETAMOL] [Concomitant]
     Indication: Premedication
     Dosage: 1000 MG
     Route: 048
     Dates: start: 20220407, end: 20220407
  24. PARALEN [PARACETAMOL] [Concomitant]
     Dosage: 500 MG
     Route: 048
     Dates: start: 20220414, end: 20220414
  25. POTASSIUM CHLORIDE [Concomitant]
     Active Substance: POTASSIUM CHLORIDE
     Dosage: UNK
     Dates: start: 2000
  26. ZYRTEC [Concomitant]
     Active Substance: CETIRIZINE HYDROCHLORIDE
     Indication: Premedication
     Dosage: 10 MG
     Route: 048
     Dates: start: 20220414, end: 20220414
  27. ZYRTEC [Concomitant]
     Active Substance: CETIRIZINE HYDROCHLORIDE
     Dosage: 10 MG
     Route: 048
     Dates: start: 20220407, end: 20220407
  28. ZYRTEC [Concomitant]
     Active Substance: CETIRIZINE HYDROCHLORIDE
     Route: 065
     Dates: start: 20220331, end: 20220414

REACTIONS (8)
  - Cytokine release syndrome [Recovered/Resolved]
  - Hypotension [Recovered/Resolved]
  - Hypoxia [Recovered/Resolved]
  - Pyrexia [Recovered/Resolved]
  - Diabetic metabolic decompensation [Recovered/Resolved]
  - Urinary tract infection [Not Recovered/Not Resolved]
  - Breath sounds abnormal [Recovered/Resolved]
  - Dyspnoea [Recovered/Resolved]

NARRATIVE: CASE EVENT DATE: 20220414
